FAERS Safety Report 6239807-7 (Version None)
Quarter: 2009Q2

REPORT INFORMATION
  Report Type: 
  Country: None (occurrence: None)
  Receive Date: 20090618
  Receipt Date: 20090618
  Transmission Date: 20091009
  Serious: Yes (Other)
  Sender: FDA-Public Use
  Company Number: None

PATIENT
  Sex: Female
  Weight: 76.2043 kg

DRUGS (1)
  1. ZICAM COLD REMEDY 0.50 FL.OZ/15ML BOTTLE ZICAM LLC, PHEONIX AZ [Suspect]
     Indication: NASOPHARYNGITIS
     Dosage: USED ONCE
     Dates: start: 20090421, end: 20090421

REACTIONS (4)
  - AGEUSIA [None]
  - ANOSMIA [None]
  - EYE PAIN [None]
  - HEADACHE [None]
